FAERS Safety Report 6543616-9 (Version None)
Quarter: 2010Q1

REPORT INFORMATION
  Report Type: 
  Country: None (occurrence: None)
  Receive Date: 20100119
  Receipt Date: 20100119
  Transmission Date: 20100710
  Serious: No
  Sender: FDA-Public Use
  Company Number: None

PATIENT
  Sex: Female
  Weight: 63.05 kg

DRUGS (2)
  1. FLUOXETINE [Suspect]
     Indication: ANXIETY
     Dosage: 40MG ONCE DAILY ORAL
     Route: 048
     Dates: start: 20090930, end: 20091023
  2. FLUOXETINE [Suspect]
     Indication: DEPRESSION
     Dosage: 40MG ONCE DAILY ORAL
     Route: 048
     Dates: start: 20090930, end: 20091023

REACTIONS (1)
  - DRUG EFFECT DECREASED [None]
